FAERS Safety Report 8988825 (Version 1)
Quarter: 2012Q4

REPORT INFORMATION
  Report Type: Spontaneous
  Country: US (occurrence: None)
  Receive Date: 20121220
  Receipt Date: 20121220
  Transmission Date: 20130627
  Serious: Yes (Hospitalization)
  Sender: FDA-Public Use
  Company Number: DSU-2012-09900

PATIENT
  Age: 65 Year
  Sex: Male
  Weight: 79.38 kg

DRUGS (3)
  1. BENICAR [Suspect]
     Indication: HYPERTENSION
     Route: 048
  2. BENICAR [Suspect]
     Indication: HYPERTENSION
     Dates: end: 2008
  3. BENICAR HCT [Suspect]
     Indication: HYPERTENSION
     Route: 048

REACTIONS (3)
  - Renal neoplasm [None]
  - Intervertebral disc protrusion [None]
  - Renal impairment [None]
